FAERS Safety Report 5305113-8 (Version None)
Quarter: 2007Q2

REPORT INFORMATION
  Report Type: 
  Country: None (occurrence: None)
  Receive Date: 20070417
  Receipt Date: 20070410
  Transmission Date: 20071010
  Serious: Yes (Other)
  Sender: FDA-Public Use
  Company Number: S07-USA-01528-03

PATIENT
  Age: 66 Year
  Sex: Male

DRUGS (12)
  1. NAMENDA [Suspect]
     Indication: MEMORY IMPAIRMENT
     Dates: start: 20070401
  2. COUMADIN [Suspect]
     Indication: MECHANICAL COMPLICATION OF IMPLANT
     Dosage: 7.5 MG QD PO
     Route: 048
     Dates: end: 20070405
  3. COUMADIN [Suspect]
     Indication: MECHANICAL COMPLICATION OF IMPLANT
     Dosage: 7.5 MG QD PO
     Route: 048
     Dates: start: 20070408
  4. XALATAN [Concomitant]
  5. COMBIVENT (ALBUTEROL/IPRATROPIUM) [Concomitant]
  6. NITROQUICK (GLYCERYL TRINITRATE) [Concomitant]
  7. TRILEPTAL [Concomitant]
  8. FLOMAX [Concomitant]
  9. METOPROLOL SUCCINATE [Concomitant]
  10. AVODART [Concomitant]
  11. FOLIC ACID [Concomitant]
  12. ALTACE [Concomitant]

REACTIONS (2)
  - DRUG INTERACTION [None]
  - INTERNATIONAL NORMALISED RATIO INCREASED [None]
